FAERS Safety Report 5481444-6 (Version None)
Quarter: 2007Q4

REPORT INFORMATION
  Report Type: 
  Country: None (occurrence: None)
  Receive Date: 20071010
  Receipt Date: 20071003
  Transmission Date: 20080405
  Serious: Yes (Hospitalization)
  Sender: FDA-Public Use
  Company Number: B0490519A

PATIENT
  Age: 46 Year
  Sex: Male

DRUGS (2)
  1. ALBENDAZOLE [Suspect]
     Dosage: 400MG SINGLE DOSE
     Route: 048
     Dates: start: 20070623, end: 20070623
  2. DIETHYLCARBAMAZINE CITRATE [Suspect]
     Dosage: 300MG SINGLE DOSE
     Route: 048
     Dates: start: 20070623, end: 20070623

REACTIONS (7)
  - DIZZINESS [None]
  - DYSPNOEA [None]
  - LYMPHADENITIS [None]
  - OEDEMA PERIPHERAL [None]
  - PYREXIA [None]
  - SOMNOLENCE [None]
  - SWELLING FACE [None]
